FAERS Safety Report 6299743-7 (Version None)
Quarter: 2009Q3

REPORT INFORMATION
  Report Type: 
  Country: None (occurrence: None)
  Receive Date: 20090806
  Receipt Date: 20090727
  Transmission Date: 20100115
  Serious: Yes (Hospitalization, Other)
  Sender: FDA-Public Use
  Company Number: US-MERCK-0706USA00880

PATIENT
  Age: 74 Year
  Sex: Female

DRUGS (3)
  1. FOSAMAX [Suspect]
     Indication: OSTEOPOROSIS
     Route: 048
     Dates: start: 20030601, end: 20060101
  2. FOSAMAX [Suspect]
     Route: 048
     Dates: start: 20071206
  3. [THERAPY UNSPECIFIED] [Concomitant]
     Indication: DIABETES MELLITUS
     Route: 065

REACTIONS (36)
  - ADVERSE DRUG REACTION [None]
  - ANGIOPATHY [None]
  - ANXIETY [None]
  - ATRIAL FIBRILLATION [None]
  - BACK INJURY [None]
  - BASAL GANGLIA INFARCTION [None]
  - BLOOD CHOLESTEROL INCREASED [None]
  - CARDIAC DISORDER [None]
  - DEEP VEIN THROMBOSIS [None]
  - DEMENTIA [None]
  - DIABETES MELLITUS [None]
  - FALL [None]
  - FATIGUE [None]
  - GASTROOESOPHAGEAL REFLUX DISEASE [None]
  - GINGIVAL BLEEDING [None]
  - HYPERGLYCAEMIA [None]
  - HYPERLIPIDAEMIA [None]
  - HYPOAESTHESIA [None]
  - JAW DISORDER [None]
  - LYMPHOEDEMA [None]
  - MACULAR DEGENERATION [None]
  - NEUROPATHY PERIPHERAL [None]
  - OEDEMA PERIPHERAL [None]
  - ORAL INFECTION [None]
  - OVERDOSE [None]
  - PAIN [None]
  - PAIN IN JAW [None]
  - PELVIC FRACTURE [None]
  - PNEUMONIA [None]
  - PNEUMONIA ASPIRATION [None]
  - PULMONARY EMBOLISM [None]
  - SWELLING [None]
  - SYNCOPE [None]
  - TOOTH LOSS [None]
  - URINARY TRACT INFECTION [None]
  - VENOUS INSUFFICIENCY [None]
